FAERS Safety Report 7263846-0 (Version None)
Quarter: 2011Q1

REPORT INFORMATION
  Report Type: 
  Country: None (occurrence: None)
  Receive Date: 20110130
  Receipt Date: 20101109
  Transmission Date: 20110831
  Serious: No
  Sender: FDA-Public Use
  Company Number: US-ABBOTT-10P-163-0684328-00

PATIENT
  Age: 56 Year
  Sex: Female

DRUGS (21)
  1. HUMIRA [Suspect]
     Indication: PRODUCT USED FOR UNKNOWN INDICATION
     Dates: start: 20101001
  2. VICTOZA [Concomitant]
     Indication: DIABETES MELLITUS
  3. LEFLUNOMIDE [Concomitant]
     Indication: ARTHRITIS
  4. SIMVASTATIN [Concomitant]
     Indication: BLOOD CHOLESTEROL INCREASED
     Dosage: AT BEDTIME
  5. METFORMIN [Concomitant]
     Indication: DIABETES MELLITUS
     Dosage: 3 IN THE EVENING
  6. FERROUS SULFATE TAB [Concomitant]
     Indication: MINERAL SUPPLEMENTATION
  7. SPIRONOLACTONE [Concomitant]
     Indication: BLOOD PRESSURE
  8. PREDNISONE [Concomitant]
     Indication: ARTHRITIS
  9. VITAMIN D [Concomitant]
     Indication: VITAMIN SUPPLEMENTATION
  10. KLOR-CON [Concomitant]
     Indication: ELECTROLYTE SUBSTITUTION THERAPY
  11. NIFEDIPINE [Concomitant]
     Indication: BLOOD PRESSURE
  12. GLYBURIDE [Concomitant]
     Indication: DIABETES MELLITUS
  13. FUROSEMIDE [Concomitant]
     Indication: BLOOD PRESSURE
  14. ALLOPURINOL [Concomitant]
     Indication: GOUT
  15. ACTOS [Concomitant]
     Indication: DIABETES MELLITUS
  16. OMEPRAZOLE [Concomitant]
     Indication: GASTROOESOPHAGEAL REFLUX DISEASE
  17. MAGNESIUM OXIDE [Concomitant]
     Indication: MINERAL SUPPLEMENTATION
  18. PROPOXYPHENE HCL AND ACETAMINOPHEN [Concomitant]
     Indication: PAIN
  19. ASA [Concomitant]
     Indication: PROPHYLAXIS
  20. AMITRIPTYLINE HCL [Concomitant]
     Indication: DEPRESSION
     Dosage: 2 AT BEDTIME
  21. NOVOLOG SLIDING SCALE [Concomitant]
     Indication: DIABETES MELLITUS
     Dosage: DEPENDS ON BLOOD SUGAR RESULTS

REACTIONS (1)
  - ARTHRALGIA [None]
